FAERS Safety Report 10144810 (Version 1)
Quarter: 2014Q2

REPORT INFORMATION
  Report Type: Spontaneous
  Country: US (occurrence: US)
  Receive Date: 20140430
  Receipt Date: 20140430
  Transmission Date: 20141212
  Serious: No
  Sender: FDA-Public Use
  Company Number: US-SA-2013SA105459

PATIENT
  Age: 59 Year
  Sex: Male

DRUGS (2)
  1. LOVENOX [Suspect]
     Indication: THROMBOSIS
     Route: 065
     Dates: start: 20131010
  2. WARFARIN [Suspect]
     Dates: start: 20131010

REACTIONS (2)
  - Bleeding time prolonged [Unknown]
  - Injection site haemorrhage [Unknown]
